FAERS Safety Report 8930381 (Version 1)
Quarter: 2012Q4

REPORT INFORMATION
  Report Type: Report from Study
  Country: DE (occurrence: DE)
  Receive Date: 20121128
  Receipt Date: 20121128
  Transmission Date: 20130627
  Serious: Yes (Hospitalization)
  Sender: FDA-Public Use
  Company Number: DE-ROCHE-1160488

PATIENT
  Sex: Male
  Weight: 75 kg

DRUGS (4)
  1. BEVACIZUMAB [Suspect]
     Indication: RECTAL CANCER
     Dosage: Last dose prior to SAE: 22/Mar/2010
     Route: 042
     Dates: start: 20100308
  2. IRINOTECAN [Suspect]
     Indication: RECTAL CANCER
     Dosage: Last dose prior to SAE: 29/Mar/2010
     Route: 042
     Dates: start: 20100308
  3. 5-FLUOROURACIL [Suspect]
     Indication: RECTAL CANCER
     Dosage: Last dose prior to SAE: 29/Mar/2010
     Route: 042
     Dates: start: 20100308
  4. CALCIUM FOLINATE [Suspect]
     Indication: RECTAL CANCER
     Dosage: Last dose prior to SAE: 29/Mar/2010
     Route: 042
     Dates: start: 20100308

REACTIONS (6)
  - Nausea [Recovered/Resolved]
  - Vomiting [Recovered/Resolved]
  - Stomatitis [Recovered/Resolved]
  - Neck pain [Recovered/Resolved]
  - Dyspnoea exertional [Recovered/Resolved]
  - General physical health deterioration [Recovered/Resolved]
